FAERS Safety Report 15345391 (Version 1)
Quarter: 2018Q3

REPORT INFORMATION
  Report Type: Report from Study
  Country: JP (occurrence: JP)
  Receive Date: 20180903
  Receipt Date: 20180903
  Transmission Date: 20181010
  Serious: Yes (Hospitalization, Other)
  Sender: FDA-Public Use
  Company Number: JP-SHIRE-ALL1-2013-03942

PATIENT

DRUGS (20)
  1. REGPARA [Concomitant]
     Active Substance: CINACALCET HYDROCHLORIDE
     Dosage: 50 MG, UNKNOWN
     Route: 048
     Dates: start: 20100504, end: 20100712
  2. 405 (LANTHANUM CARBONATE) [Suspect]
     Active Substance: LANTHANUM CARBONATE
     Indication: HYPERPHOSPHATAEMIA
     Dosage: 750 MG, UNKNOWN
     Route: 048
     Dates: start: 20100408, end: 20101227
  3. PRECIPITATED CALCIUM CARBONATE [Concomitant]
     Active Substance: CALCIUM CARBONATE
     Indication: HYPERPHOSPHATAEMIA
     Dosage: 3 G, UNKNOWN
     Route: 048
     Dates: start: 200503
  4. FULSTAN [Concomitant]
     Dosage: 0.45 ?G, UNKNOWN
     Route: 048
     Dates: start: 20111227, end: 20120305
  5. REGPARA [Concomitant]
     Active Substance: CINACALCET HYDROCHLORIDE
     Dosage: UNK
     Dates: start: 20090820, end: 20130503
  6. JUVELA NICOTINATE [Concomitant]
     Active Substance: TOCOPHERYL NICOTINATE, D-.ALPHA.
     Indication: ANTIOXIDANT THERAPY
     Dosage: 300 MG, UNKNOWN
     Route: 048
  7. 405 (LANTHANUM CARBONATE) [Suspect]
     Active Substance: LANTHANUM CARBONATE
     Dosage: 750 MG, UNKNOWN
     Route: 048
     Dates: start: 20130219, end: 20170912
  8. FULSTAN [Concomitant]
     Dosage: 0.6 ?G, 1X/WEEK
     Route: 048
     Dates: start: 20101214
  9. SERENAMIN [Concomitant]
     Active Substance: DIAZEPAM
     Indication: PRODUCT USED FOR UNKNOWN INDICATION
     Dosage: 2 MG, UNKNOWN
     Route: 048
  10. 405 (LANTHANUM CARBONATE) [Suspect]
     Active Substance: LANTHANUM CARBONATE
     Dosage: 2250 MG, UNKNOWN
     Route: 048
     Dates: start: 20110628, end: 20130218
  11. GAMOFA [Concomitant]
     Active Substance: FAMOTIDINE
     Indication: PRODUCT USED FOR UNKNOWN INDICATION
     Dosage: 10 MG, UNKNOWN
     Route: 048
  12. FULSTAN [Concomitant]
     Dosage: 0.15 ?G, UNKNOWN
     Route: 048
     Dates: start: 20111030, end: 20111128
  13. FULSTAN [Concomitant]
     Dosage: 0.6 ?G, UNKNOWN
     Route: 048
     Dates: start: 20120306
  14. FULSTAN [Concomitant]
     Indication: HYPERPARATHYROIDISM SECONDARY
     Dosage: 0.15 ?G, UNKNOWN
     Route: 048
     Dates: start: 20100223
  15. REGPARA [Concomitant]
     Active Substance: CINACALCET HYDROCHLORIDE
     Indication: HYPERPARATHYROIDISM SECONDARY
     Dosage: 25 MG, UNKNOWN
     Route: 048
     Dates: start: 20090820, end: 20100503
  16. REGPARA [Concomitant]
     Active Substance: CINACALCET HYDROCHLORIDE
     Dosage: 200 MG, OTHER(IN ABSENCE OF HEMODIALYSIS)
     Dates: start: 20100713
  17. 405 (LANTHANUM CARBONATE) [Suspect]
     Active Substance: LANTHANUM CARBONATE
     Dosage: 1500 MG, UNKNOWN
     Route: 048
     Dates: start: 20101228, end: 20110627
  18. FULSTAN [Concomitant]
     Dosage: 0.3 ?G, UNKNOWN
     Route: 048
     Dates: start: 20111129, end: 20111226
  19. REGPARA [Concomitant]
     Active Substance: CINACALCET HYDROCHLORIDE
     Dosage: 25 MG (ON THE DAY OF HAEMODIALYSIS)
     Route: 048
     Dates: start: 20100713
  20. EPOGIN [Concomitant]
     Active Substance: ERYTHROPOIETIN
     Indication: PRODUCT USED FOR UNKNOWN INDICATION
     Dosage: 1500 IU, UNKNOWN
     Route: 042
     Dates: start: 20100313

REACTIONS (3)
  - Hyperparathyroidism secondary [Recovering/Resolving]
  - Condition aggravated [Recovering/Resolving]
  - Hypothyroidism [Not Recovered/Not Resolved]

NARRATIVE: CASE EVENT DATE: 20100420
